FAERS Safety Report 8549334-X (Version None)
Quarter: 2012Q3

REPORT INFORMATION
  Report Type: 
  Country: None (occurrence: None)
  Receive Date: 20120730
  Receipt Date: 20120726
  Transmission Date: 20120928
  Serious: Yes (Death)
  Sender: FDA-Public Use
  Company Number: US-ROCHE-1035775

PATIENT
  Sex: Male
  Weight: 85.352 kg

DRUGS (1)
  1. AVASTIN [Suspect]
     Indication: LUNG NEOPLASM MALIGNANT
     Route: 042
     Dates: start: 20070721, end: 20070821

REACTIONS (2)
  - RESPIRATORY FAILURE [None]
  - SEPSIS [None]
